FAERS Safety Report 19965142 (Version 1)
Quarter: 2021Q4

REPORT INFORMATION
  Report Type: Spontaneous
  Country: FR (occurrence: FR)
  Receive Date: 20211018
  Receipt Date: 20211018
  Transmission Date: 20220303
  Serious: Yes (Hospitalization)
  Sender: FDA-Public Use
  Company Number: FR-PFIZER INC-202101292140

PATIENT
  Age: 69 Year
  Sex: Female
  Weight: 68 kg

DRUGS (36)
  1. DEXAMETHASONE [Suspect]
     Active Substance: DEXAMETHASONE
     Indication: Product used for unknown indication
     Dosage: 10 MG/12H ON DAY 1 AND DAY 2 OF CONSOLIDATION
     Route: 042
     Dates: start: 20210913
  2. METHOTREXATE [Suspect]
     Active Substance: METHOTREXATE
     Indication: Acute lymphocytic leukaemia
     Dosage: 15 MG DAY 2 INDUCTION I
     Route: 037
     Dates: start: 20210706, end: 20210706
  3. METHOTREXATE [Suspect]
     Active Substance: METHOTREXATE
     Dosage: 15 MG DAY 2 INDUCTION II
     Route: 037
     Dates: start: 20210821
  4. VINCRISTINE SULFATE [Suspect]
     Active Substance: VINCRISTINE SULFATE
     Indication: Acute lymphocytic leukaemia
     Dosage: 2 MG DAY 8 INDUCTION I
     Route: 065
     Dates: start: 20210712, end: 20210712
  5. VINCRISTINE SULFATE [Suspect]
     Active Substance: VINCRISTINE SULFATE
     Dosage: 2 MG DAY 1 INDUCTION I
     Route: 065
     Dates: start: 20210705, end: 20210705
  6. VINCRISTINE SULFATE [Suspect]
     Active Substance: VINCRISTINE SULFATE
     Dosage: 2 MG DAY 22 INDUCTION I
     Route: 065
     Dates: start: 20210726, end: 20210726
  7. VINCRISTINE SULFATE [Suspect]
     Active Substance: VINCRISTINE SULFATE
     Dosage: 2 MG DAY 15 INDUCTION I
     Route: 065
     Dates: start: 20210719, end: 20210719
  8. CYTARABINE [Suspect]
     Active Substance: CYTARABINE
     Indication: Acute lymphocytic leukaemia
     Dosage: 40 MG DAY 2 INDUCTION II
     Route: 065
     Dates: start: 20210820
  9. CYTARABINE [Suspect]
     Active Substance: CYTARABINE
     Dosage: 1.5 MG/M2/12H DAY 1 AND DAY 2 CONSOLIDATION
     Route: 065
     Dates: start: 20210913
  10. CYTARABINE [Suspect]
     Active Substance: CYTARABINE
     Dosage: 40 MG DAY 2 INDUCTION I
     Route: 065
     Dates: start: 20210706, end: 20210706
  11. CYCLOPHOSPHAMIDE [Suspect]
     Active Substance: CYCLOPHOSPHAMIDE
     Indication: Product used for unknown indication
     Dosage: 495 MG DAY 3 INDUCTION II
     Route: 065
     Dates: start: 20210821
  12. CYCLOPHOSPHAMIDE [Suspect]
     Active Substance: CYCLOPHOSPHAMIDE
     Dosage: 495 MG DAY 1 INDUCTION II
     Route: 065
     Dates: start: 20210819
  13. CYCLOPHOSPHAMIDE [Suspect]
     Active Substance: CYCLOPHOSPHAMIDE
     Dosage: 495 MG DAY 2 INDUCTION II
     Route: 065
     Dates: start: 20210820
  14. OMEPRAZOLE [Concomitant]
     Active Substance: OMEPRAZOLE
     Indication: Product used for unknown indication
     Dosage: 20 MG, DAILY
  15. MIANSERIN HYDROCHLORIDE [Concomitant]
     Active Substance: MIANSERIN HYDROCHLORIDE
     Indication: Product used for unknown indication
     Dosage: 2 DF, 1X/DAY IN THE EVENING
     Route: 048
  16. POTASSIUM CHLORIDE [Concomitant]
     Active Substance: POTASSIUM CHLORIDE
     Indication: Product used for unknown indication
     Dosage: 1 DF, 3X/DAY IN THE MORNING, AT NOON AND IN THE EVENING
     Route: 048
  17. CHOLECALCIFEROL [Concomitant]
     Active Substance: CHOLECALCIFEROL
     Indication: Product used for unknown indication
     Dosage: 50000 IU EVERY 7 DAYS IN THE MORNING FOR 6 WEEKS THEN EVERY MONTH FOR 6 MONTHS, CYCLICAL
     Route: 048
  18. VALACYCLOVIR HYDROCHLORIDE [Concomitant]
     Active Substance: VALACYCLOVIR HYDROCHLORIDE
     Indication: Product used for unknown indication
     Dosage: 1 DF, 2X/DAY IN THE MORNING AND IN THE EVENING
     Route: 048
  19. KARDEGIC [Concomitant]
     Active Substance: ASPIRIN DL-LYSINE
     Indication: Product used for unknown indication
     Dosage: 1 SACHET, 1X/DAY AT NOON
     Route: 048
  20. ATORVASTATIN CALCIUM [Concomitant]
     Active Substance: ATORVASTATIN CALCIUM
     Indication: Product used for unknown indication
     Dosage: 1 DF, 1X/DAY IN THE EVENING
     Route: 048
  21. PANTOPRAZOLE SODIUM [Concomitant]
     Active Substance: PANTOPRAZOLE SODIUM
     Indication: Product used for unknown indication
     Dosage: 1 DF, DAILY IN THE EVENING
     Route: 048
  22. OXAZEPAM [Concomitant]
     Active Substance: OXAZEPAM
     Indication: Product used for unknown indication
     Dosage: 10 MG, 1X/DAY IN THE EVENING
  23. MAGNESIUM [Concomitant]
     Active Substance: MAGNESIUM
     Indication: Product used for unknown indication
     Dosage: 2 SACHET, 3X/DAY
     Route: 048
  24. CANDESARTAN CILEXETIL [Concomitant]
     Active Substance: CANDESARTAN CILEXETIL
     Indication: Product used for unknown indication
     Dosage: 2 DF, 1X/DAY IN THE MORNING
     Route: 048
  25. ESIDREX [Concomitant]
     Active Substance: HYDROCHLOROTHIAZIDE
     Indication: Product used for unknown indication
     Dosage: 1 DF, 1X/DAY IN THE MORNING
     Route: 048
  26. METFORMIN HYDROCHLORIDE [Concomitant]
     Active Substance: METFORMIN HYDROCHLORIDE
     Indication: Product used for unknown indication
     Dosage: 500 MG, 1X/DAY IN THE EVENING
     Route: 048
  27. SPIRIVA [Concomitant]
     Active Substance: TIOTROPIUM BROMIDE MONOHYDRATE
     Indication: Product used for unknown indication
     Dosage: 1 DF, DAILY IN THE MORNING
     Route: 055
  28. CALCIUM PHOSPHATE, DIBASIC, ANHYDROUS\MAGNESIUM GLYCEROPHOSPHATE\PHOSP [Concomitant]
     Active Substance: CALCIUM PHOSPHATE, DIBASIC, ANHYDROUS\MAGNESIUM GLYCEROPHOSPHATE\PHOSPHORIC ACID\SODIUM PHOSPHATE, D
     Indication: Product used for unknown indication
     Dosage: 15 DROP, 2X/DAY IN THE MORNING AND IN THE EVENING
     Route: 048
  29. INOTUZUMAB OZOGAMICIN [Concomitant]
     Active Substance: INOTUZUMAB OZOGAMICIN
     Indication: Acute lymphocytic leukaemia
     Dosage: 1.38 MG DAY 1 INDUCTION I
     Dates: start: 20210705, end: 20210705
  30. INOTUZUMAB OZOGAMICIN [Concomitant]
     Active Substance: INOTUZUMAB OZOGAMICIN
     Dosage: 1.38 MG DAY 15 INDUCTION I
     Dates: start: 20210719, end: 20210719
  31. INOTUZUMAB OZOGAMICIN [Concomitant]
     Active Substance: INOTUZUMAB OZOGAMICIN
     Dosage: 0.82 DAY 8 INDUCTION II
     Dates: start: 20210826
  32. INOTUZUMAB OZOGAMICIN [Concomitant]
     Active Substance: INOTUZUMAB OZOGAMICIN
     Dosage: 0.82 DAY 1 INDUCTION II
     Dates: start: 20210819, end: 20210826
  33. INOTUZUMAB OZOGAMICIN [Concomitant]
     Active Substance: INOTUZUMAB OZOGAMICIN
     Dosage: 1.38 MG DAY 8 INDUCTION I
     Dates: start: 20210712, end: 20210712
  34. INSULIN ASPART [Concomitant]
     Active Substance: INSULIN ASPART
     Indication: Product used for unknown indication
     Dosage: ON MONDAY, TUESDAY, WEDNESDAY AND THURSDAY 16 IU AT 7 AM AND 18 IU AT 12 AM
     Route: 058
  35. TRANSIPEG [Concomitant]
     Indication: Product used for unknown indication
     Dosage: 2 SACHET, 1X/DAY IN THE MORNING
     Route: 048
  36. INSULIN NOS [Concomitant]
     Active Substance: INSULIN NOS
     Indication: Product used for unknown indication
     Dosage: UNK, AS NEEDED

REACTIONS (1)
  - Febrile neutropenia [Not Recovered/Not Resolved]

NARRATIVE: CASE EVENT DATE: 20210923
